FAERS Safety Report 7305684-6 (Version None)
Quarter: 2011Q1

REPORT INFORMATION
  Report Type: 
  Country: None (occurrence: None)
  Receive Date: 20110209
  Receipt Date: 20110124
  Transmission Date: 20110831
  Serious: Yes (Other)
  Sender: FDA-Public Use
  Company Number: 2011AP000103

PATIENT
  Age: 62 Year
  Sex: Female

DRUGS (1)
  1. ALENDRONATE SODIUM [Suspect]
     Indication: OSTEOPOROSIS
     Dosage: 70 MG;PO;QW

REACTIONS (5)
  - NASAL POLYPS [None]
  - UPPER AIRWAY OBSTRUCTION [None]
  - BLOOD CALCIUM INCREASED [None]
  - OSTEONECROSIS [None]
  - DENTAL CARIES [None]
